FAERS Safety Report 21567566 (Version 2)
Quarter: 2022Q4

REPORT INFORMATION
  Report Type: Spontaneous
  Country: US (occurrence: US)
  Receive Date: 20221108
  Receipt Date: 20221207
  Transmission Date: 20230113
  Serious: No
  Sender: FDA-Public Use
  Company Number: US-JNJFOC-20221112845

PATIENT
  Age: 82 Year
  Sex: Female

DRUGS (1)
  1. WOMENS ROGAINE UNSCENTED [Suspect]
     Active Substance: MINOXIDIL
     Indication: Alopecia
     Dosage: A CAPFUL
     Route: 061
     Dates: start: 202210

REACTIONS (4)
  - Trichorrhexis [Not Recovered/Not Resolved]
  - Hair texture abnormal [Unknown]
  - Application site erosion [Unknown]
  - Overdose [Unknown]

NARRATIVE: CASE EVENT DATE: 20221001
